FAERS Safety Report 17631935 (Version 1)
Quarter: 2020Q2

REPORT INFORMATION
  Report Type: Spontaneous
  Country: IE (occurrence: IE)
  Receive Date: 20200406
  Receipt Date: 20200406
  Transmission Date: 20200713
  Serious: Yes (Other)
  Sender: FDA-Public Use
  Company Number: IE-JNJFOC-20200336349

PATIENT
  Age: 46 Year
  Sex: Female

DRUGS (4)
  1. CETIRIZINE [Concomitant]
     Active Substance: CETIRIZINE HYDROCHLORIDE
     Indication: PREMEDICATION
     Dosage: PREMEDICATION
     Route: 048
     Dates: start: 20200316
  2. MEZAVANT [Concomitant]
     Active Substance: MESALAMINE
     Indication: PROPHYLAXIS
     Route: 048
  3. REMICADE [Suspect]
     Active Substance: INFLIXIMAB
     Route: 042
     Dates: start: 20200316
  4. REMICADE [Suspect]
     Active Substance: INFLIXIMAB
     Indication: PROPHYLAXIS
     Route: 042

REACTIONS (4)
  - Heart rate increased [Recovered/Resolved]
  - Erythema [Recovered/Resolved]
  - Chest discomfort [Recovered/Resolved]
  - Blood pressure increased [Recovered/Resolved]

NARRATIVE: CASE EVENT DATE: 20200316
